FAERS Safety Report 7307379-1 (Version None)
Quarter: 2011Q1

REPORT INFORMATION
  Report Type: 
  Country: None (occurrence: None)
  Receive Date: 20110209
  Receipt Date: 20110209
  Transmission Date: 20110831
  Serious: Yes (Death)
  Sender: FDA-Public Use
  Company Number: AE11-015-29

PATIENT
  Age: 55 Year
  Sex: Female

DRUGS (1)
  1. LORCET (ACETAMINOPHEN/ HYDROCODONE) [Suspect]

REACTIONS (1)
  - COMPLETED SUICIDE [None]
